FAERS Safety Report 6195249-4 (Version None)
Quarter: 2009Q2

REPORT INFORMATION
  Report Type: 
  Country: None (occurrence: None)
  Receive Date: 20090519
  Receipt Date: 20090511
  Transmission Date: 20091009
  Serious: Yes (Other)
  Sender: FDA-Public Use
  Company Number: US-ELI_LILLY_AND_COMPANY-US200905002058

PATIENT
  Sex: Female

DRUGS (5)
  1. HUMALOG [Suspect]
  2. LEVEMIR [Concomitant]
     Dosage: UNK, EACH EVENING
  3. METFORMIN HCL [Concomitant]
     Dosage: 500 MG, 2/D
  4. PRAVASTATIN [Concomitant]
  5. BUPROPION HCL [Concomitant]

REACTIONS (5)
  - DEPRESSION [None]
  - HYPOTHYROIDISM [None]
  - RETINAL HAEMORRHAGE [None]
  - RETINAL OEDEMA [None]
  - RETINOPATHY [None]
